FAERS Safety Report 8846082 (Version 5)
Quarter: 2014Q3

REPORT INFORMATION
  Report Type: Spontaneous
  Country: US (occurrence: US)
  Receive Date: 20121017
  Receipt Date: 20140804
  Transmission Date: 20150326
  Serious: Yes (Other)
  Sender: FDA-Public Use
  Company Number: US-009507513-2012SP029906

PATIENT
  Sex: Female
  Weight: 126.98 kg

DRUGS (1)
  1. NUVARING [Suspect]
     Active Substance: ETHINYL ESTRADIOL\ETONOGESTREL
     Indication: CONTRACEPTION
     Dosage: UNK
     Route: 067
     Dates: start: 200604, end: 20090527

REACTIONS (13)
  - Synovial rupture [Unknown]
  - Telangiectasia [Unknown]
  - Arthritis [Unknown]
  - Deep vein thrombosis [Recovered/Resolved]
  - Periarthritis [Unknown]
  - Diabetes mellitus [Unknown]
  - Infection [Unknown]
  - Pain in extremity [Unknown]
  - Mammoplasty [Unknown]
  - Pneumonia [Unknown]
  - Oedema peripheral [Unknown]
  - Gastrooesophageal reflux disease [Unknown]
  - Menorrhagia [Unknown]

NARRATIVE: CASE EVENT DATE: 200902
